FAERS Safety Report 8089174-1 (Version None)
Quarter: 2012Q1

REPORT INFORMATION
  Report Type: 
  Country: None (occurrence: None)
  Receive Date: 20120128
  Receipt Date: 20110705
  Transmission Date: 20120608
  Serious: No
  Sender: FDA-Public Use
  Company Number: US-ABBOTT-11P-163-0731592-00

PATIENT
  Sex: Female

DRUGS (4)
  1. BENADRYL [Concomitant]
     Indication: PRURITUS
     Dosage: AT NIGHT TIME
  2. HUMIRA [Suspect]
     Dates: start: 20110101, end: 20110601
  3. ZYRTEC [Concomitant]
     Indication: PRODUCT USED FOR UNKNOWN INDICATION
     Dosage: DAYTIME
  4. HUMIRA [Suspect]
     Indication: PSORIASIS
     Route: 058
     Dates: start: 20101101, end: 20110201

REACTIONS (5)
  - URTICARIA [None]
  - RASH PUSTULAR [None]
  - RASH PRURITIC [None]
  - RASH ERYTHEMATOUS [None]
  - PSORIASIS [None]
